FAERS Safety Report 11372873 (Version 1)
Quarter: 2015Q3

REPORT INFORMATION
  Report Type: Spontaneous
  Country: US (occurrence: US)
  Receive Date: 20150811
  Receipt Date: 20150811
  Transmission Date: 20151125
  Serious: Yes (Other)
  Sender: FDA-Public Use
  Company Number: US-ELI_LILLY_AND_COMPANY-US201112000915

PATIENT
  Sex: Male

DRUGS (5)
  1. CIALIS [Suspect]
     Active Substance: TADALAFIL
     Dosage: 20 MG, UNK
     Dates: end: 201107
  2. UNSPECIFIED HERBAL [Concomitant]
  3. DEXIRON [Concomitant]
     Active Substance: IRON DEXTRAN
  4. CIALIS [Suspect]
     Active Substance: TADALAFIL
     Indication: ERECTILE DYSFUNCTION
     Dosage: 10 MG, UNK
     Dates: start: 201105
  5. UNSPECIFIED HERBAL [Concomitant]

REACTIONS (1)
  - Deafness [Not Recovered/Not Resolved]
